FAERS Safety Report 4463069-4 (Version None)
Quarter: 2004Q3

REPORT INFORMATION
  Report Type: 
  Country: None (occurrence: None)
  Receive Date: 20040928
  Receipt Date: 20040920
  Transmission Date: 20050211
  Serious: Yes (Other)
  Sender: FDA-Public Use
  Company Number: 184303

PATIENT
  Age: 52 Year
  Sex: Male
  Weight: 63.5036 kg

DRUGS (6)
  1. AVONEX [Suspect]
     Indication: MULTIPLE SCLEROSIS
     Dosage: 30 MCG QW IM
     Route: 030
     Dates: start: 19960621
  2. ZANAFLEX [Concomitant]
  3. LAMICTAL [Concomitant]
  4. DILANTIN [Concomitant]
  5. NEXIUM [Concomitant]
  6. TOPAMAX [Concomitant]

REACTIONS (4)
  - HYPERTENSION [None]
  - LIVER FUNCTION TEST ABNORMAL [None]
  - PARTIAL SEIZURES [None]
  - PROSTATE CANCER [None]
